FAERS Safety Report 17041871 (Version 1)
Quarter: 2019Q4

REPORT INFORMATION
  Report Type: Spontaneous
  Country: JP (occurrence: JP)
  Receive Date: 20191118
  Receipt Date: 20191118
  Transmission Date: 20200122
  Serious: Yes (Other)
  Sender: FDA-Public Use
  Company Number: JP-ACCORD-160607

PATIENT
  Age: 74 Year
  Sex: Male

DRUGS (8)
  1. IRINOTECAN [Suspect]
     Active Substance: IRINOTECAN
     Indication: COLON CANCER
     Dosage: ON DAY 1 ON A BIWEEKLY CYCLE
  2. BEVACIZUMAB. [Suspect]
     Active Substance: BEVACIZUMAB
     Indication: COLON CANCER
     Dosage: ON DAY 1, FOR SEVEN COURSES DURING APPROXIMATELY 5 MONTHS
  3. TEGAFUR/GIMERACIL/OTERACIL POTASSIUM [Suspect]
     Active Substance: GIMERACIL\OTERACIL\TEGAFUR
     Indication: COLON CANCER
     Dosage: TWICE DAILY FOR 2 WEEKS
  4. PANITUMUMAB [Suspect]
     Active Substance: PANITUMUMAB
     Indication: COLON CANCER
     Dosage: ON DAY 1 ON A BIWEEKLY CYCLE
  5. CAPECITABINE. [Suspect]
     Active Substance: CAPECITABINE
     Indication: COLON CANCER
     Dosage: TWICE DAILY FOR 2 WEEKS ON A TRIWEEKLY CYCLE
     Route: 048
  6. BEVACIZUMAB. [Suspect]
     Active Substance: BEVACIZUMAB
     Indication: COLON CANCER
     Dosage: ON DAYS 1 AND 15
  7. OXALIPLATIN. [Suspect]
     Active Substance: OXALIPLATIN
     Indication: COLON CANCER
     Dosage: ON DAY 1,  FOR SEVEN COURSES DURING APPROXIMATELY 5 MONTHS
  8. IRINOTECAN [Suspect]
     Active Substance: IRINOTECAN
     Indication: COLON CANCER
     Dosage: ON DAYS 1 AND 15

REACTIONS (2)
  - Neuropathy peripheral [Recovered/Resolved]
  - Dysgeusia [Recovered/Resolved]
